FAERS Safety Report 6153062-8 (Version None)
Quarter: 2009Q2

REPORT INFORMATION
  Report Type: 
  Country: None (occurrence: None)
  Receive Date: 20090413
  Receipt Date: 20090401
  Transmission Date: 20091009
  Serious: Yes (Other)
  Sender: FDA-Public Use
  Company Number: US-ELI_LILLY_AND_COMPANY-US200904000261

PATIENT
  Sex: Male

DRUGS (1)
  1. ZYPREXA [Suspect]
     Indication: PSYCHOTIC BEHAVIOUR

REACTIONS (1)
  - ELECTROCARDIOGRAM QT PROLONGED [None]
